FAERS Safety Report 4496301-1 (Version None)
Quarter: 2004Q4

REPORT INFORMATION
  Report Type: 
  Country: None (occurrence: None)
  Receive Date: 20041109
  Receipt Date: 20041029
  Transmission Date: 20050328
  Serious: Yes (Other)
  Sender: FDA-Public Use
  Company Number: 200418381US

PATIENT
  Sex: Female

DRUGS (2)
  1. TAXOTERE [Suspect]
     Indication: BREAST CANCER
  2. UNKNOWN DRUG [Concomitant]
     Dosage: DOSE: UNK

REACTIONS (5)
  - CONDITION AGGRAVATED [None]
  - DISORIENTATION [None]
  - DYSSTASIA [None]
  - MULTIPLE SCLEROSIS [None]
  - URINARY INCONTINENCE [None]
